FAERS Safety Report 7285190-8 (Version None)
Quarter: 2011Q1

REPORT INFORMATION
  Report Type: 
  Country: None (occurrence: None)
  Receive Date: 20110204
  Receipt Date: 20110204
  Transmission Date: 20110831
  Serious: Yes (Hospitalization)
  Sender: FDA-Public Use
  Company Number: None

PATIENT
  Sex: Female
  Weight: 78.8 kg

DRUGS (17)
  1. GANETESPID STA-09090 (IND 107842) [Suspect]
     Indication: OESOPHAGEAL CANCER METASTATIC
     Dosage: 200 MG/M2
     Dates: start: 20101026, end: 20110118
  2. NAPOREX [Concomitant]
  3. NORTRIPTYLINE [Concomitant]
  4. VITAMIN D [Concomitant]
  5. IPRATROPIUM NASAL [Concomitant]
  6. LOTOMIL [Concomitant]
  7. TYLENOL PM [Concomitant]
  8. ATIVAN [Concomitant]
  9. BUMEX [Concomitant]
  10. CALCIUM [Concomitant]
  11. ZOFRAN [Concomitant]
  12. COMPAZINE [Concomitant]
  13. OMEPRAZOLE [Concomitant]
  14. ASPIRIN [Concomitant]
  15. DILTIAZEM [Concomitant]
  16. MULTI-VITAMIN [Concomitant]
  17. PERI-COLACE [Concomitant]

REACTIONS (7)
  - HYPONATRAEMIA [None]
  - HYPOALBUMINAEMIA [None]
  - RENAL DISORDER [None]
  - HYDRONEPHROSIS [None]
  - HYPERKALAEMIA [None]
  - RENAL FUNCTION TEST ABNORMAL [None]
  - HAEMOGLOBIN ABNORMAL [None]
